FAERS Safety Report 9706977 (Version 1)
Quarter: 2013Q4

REPORT INFORMATION
  Report Type: Spontaneous
  Country: US (occurrence: US)
  Receive Date: 20131125
  Receipt Date: 20131125
  Transmission Date: 20140711
  Serious: No
  Sender: FDA-Public Use
  Company Number: US-PFIZER INC-2013334784

PATIENT
  Age: 70 Year
  Sex: Male

DRUGS (1)
  1. XELJANZ [Suspect]
     Dosage: 5 MG, TWICE DAILY
     Route: 048
     Dates: start: 20131020

REACTIONS (1)
  - Nausea [Unknown]
